FAERS Safety Report 4559614-0 (Version None)
Quarter: 2005Q1

REPORT INFORMATION
  Report Type: 
  Country: None (occurrence: None)
  Receive Date: 20050124
  Receipt Date: 20050114
  Transmission Date: 20050727
  Serious: Yes (Other)
  Sender: FDA-Public Use
  Company Number: CH-ABBOTT-05P-151-0286863-00

PATIENT
  Age: 33 Year
  Sex: Male

DRUGS (7)
  1. DEPAKENE [Suspect]
     Indication: EMOTIONAL DISORDER
     Route: 048
  2. DEPAKENE [Interacting]
     Indication: AFFECTIVE DISORDER
  3. DEPAKENE [Interacting]
     Indication: INTERMITTENT EXPLOSIVE DISORDER
  4. ZOLPIDEM TARTRATE [Interacting]
     Indication: SLEEP DISORDER
     Route: 065
  5. MIDAZOLAM HCL [Interacting]
     Indication: INTENTIONAL MISUSE
     Route: 048
     Dates: start: 20040912, end: 20040912
  6. MIDAZOLAM HCL [Interacting]
     Indication: SLEEP DISORDER
     Route: 048
  7. ETHANOL [Interacting]
     Indication: DRUG USE FOR UNKNOWN INDICATION
     Dosage: ONE BEER AT 6 PM
     Route: 048
     Dates: start: 20040912, end: 20040912

REACTIONS (6)
  - AGGRESSION [None]
  - ALCOHOL INTERACTION [None]
  - AMNESIA [None]
  - INTENTIONAL MISUSE [None]
  - INTENTIONAL SELF-INJURY [None]
  - OVERDOSE [None]
